FAERS Safety Report 21833752 (Version 1)
Quarter: 2023Q1

REPORT INFORMATION
  Report Type: Spontaneous
  Country: US (occurrence: US)
  Receive Date: 20230107
  Receipt Date: 20230107
  Transmission Date: 20230418
  Serious: Yes (Hospitalization, Other)
  Sender: FDA-Public Use
  Company Number: US-UNITED THERAPEUTICS-UNT-2022-024214

PATIENT
  Age: 1 Year
  Sex: Male
  Weight: 7.71 kg

DRUGS (9)
  1. REMODULIN [Suspect]
     Active Substance: TREPROSTINIL
     Indication: Heritable pulmonary arterial hypertension
     Dosage: UNK, CONTINUING
     Route: 058
     Dates: start: 20211105
  2. REMODULIN [Suspect]
     Active Substance: TREPROSTINIL
     Dosage: 0.078 ?G/KG, CONTINUING
     Route: 058
  3. REMODULIN [Suspect]
     Active Substance: TREPROSTINIL
     Indication: Heritable pulmonary arterial hypertension
     Dosage: UNK, CONTINUING
     Route: 058
     Dates: start: 20210929
  4. ADEMPAS [Concomitant]
     Active Substance: RIOCIGUAT
     Indication: Pulmonary arterial hypertension
     Dosage: UNK
     Route: 048
     Dates: start: 202111, end: 2021
  5. ADEMPAS [Concomitant]
     Active Substance: RIOCIGUAT
     Dosage: 1 IN 0.33 DAY
     Route: 048
     Dates: start: 20211204
  6. TRACLEER [Concomitant]
     Active Substance: BOSENTAN
     Indication: Heritable pulmonary arterial hypertension
     Dosage: 16 MG, BID (1 IN 0.5 DAY)
     Route: 048
     Dates: start: 20210929
  7. TRACLEER [Concomitant]
     Active Substance: BOSENTAN
     Dosage: 16 MG, BID (1 IN 0.5 DAY)
     Route: 048
     Dates: start: 20211105
  8. TRACLEER [Concomitant]
     Active Substance: BOSENTAN
     Dosage: 32 MG, BID (1 IN 0.5 DAY)
     Route: 048
     Dates: start: 20211105
  9. SILDENAFIL [Concomitant]
     Active Substance: SILDENAFIL
     Indication: Pulmonary arterial hypertension
     Dosage: 1 IN 0.33 DAY
     Route: 048
     Dates: start: 20210827, end: 20211205

REACTIONS (1)
  - Respiratory distress [Unknown]

NARRATIVE: CASE EVENT DATE: 20221014
